FAERS Safety Report 13473854 (Version 1)
Quarter: 2017Q2

REPORT INFORMATION
  Report Type: Spontaneous
  Country: US (occurrence: US)
  Receive Date: 20170424
  Receipt Date: 20170424
  Transmission Date: 20170830
  Serious: No
  Sender: FDA-Public Use
  Company Number: US-ASTRAZENECA-2017SE39466

PATIENT
  Sex: Female

DRUGS (1)
  1. CRESTOR [Suspect]
     Active Substance: ROSUVASTATIN CALCIUM
     Route: 048

REACTIONS (5)
  - Loss of personal independence in daily activities [Unknown]
  - Arthralgia [Recovering/Resolving]
  - Fatigue [Unknown]
  - Myalgia [Recovering/Resolving]
  - Insurance issue [Unknown]
